FAERS Safety Report 8865583 (Version 1)
Quarter: 2012Q4

REPORT INFORMATION
  Report Type: 
  Country: US (occurrence: US)
  Receive Date: 20121024
  Receipt Date: 20121024
  Transmission Date: 20130627
  Serious: No
  Sender: FDA-Public Use
  Company Number: US-AMGEN-USASP2012003788

PATIENT
  Age: 71 Year
  Sex: Female

DRUGS (11)
  1. ENBREL [Suspect]
     Indication: PRODUCT USED FOR UNKNOWN INDICATION
     Dosage: 50 mg, qwk
     Route: 058
  2. MEDROL                             /00049601/ [Concomitant]
  3. ADVIL                              /00044201/ [Concomitant]
     Dosage: 200 mg, UNK
  4. FOLIC ACID [Concomitant]
     Dosage: 5 mg, UNK
  5. DILTIAZEM CD [Concomitant]
     Dosage: 120 mg, UNK
  6. VITAMIN E                          /00110501/ [Concomitant]
  7. MULTIVITAMIN                       /00097801/ [Concomitant]
  8. SYMBICORT [Concomitant]
  9. ZOCOR [Concomitant]
     Dosage: 10 mg, UNK
  10. CALCIUM 500+D [Concomitant]
  11. FORTEO [Concomitant]

REACTIONS (4)
  - Injection site erythema [Unknown]
  - Injection site swelling [Unknown]
  - Rash pruritic [Recovered/Resolved]
  - Rash [Unknown]
